FAERS Safety Report 5119853-7 (Version None)
Quarter: 2006Q3

REPORT INFORMATION
  Report Type: 
  Country: None (occurrence: None)
  Receive Date: 20060929
  Receipt Date: 20060914
  Transmission Date: 20061208
  Serious: Yes (Death, Hospitalization)
  Sender: FDA-Public Use
  Company Number: POMP-10827

PATIENT
  Age: 19 Year
  Sex: Male

DRUGS (2)
  1. MYOZYME [Suspect]
     Indication: GLYCOGEN STORAGE DISEASE TYPE II
     Dates: start: 20060701, end: 20060907
  2. ALPHA-GLUCOSIDASE (HUMAN, REOMBNANT, CHO CELLS, GENZYME) [Suspect]
     Indication: GLYCOGEN STORAGE DISEASE TYPE II
     Dosage: 20 MG/KG Q2WKS IV
     Route: 042
     Dates: start: 20041207, end: 20060706

REACTIONS (2)
  - CEREBROVASCULAR ACCIDENT [None]
  - INTRACRANIAL ANEURYSM [None]
